FAERS Safety Report 25487731 (Version 2)
Quarter: 2025Q3

REPORT INFORMATION
  Report Type: Spontaneous
  Country: GB (occurrence: GB)
  Receive Date: 20250627
  Receipt Date: 20250713
  Transmission Date: 20251021
  Serious: Yes (Hospitalization, Other)
  Sender: SANOFI AVENTIS
  Company Number: GB-SANOFI-02565318

PATIENT
  Age: 75 Year
  Sex: Male

DRUGS (2)
  1. TOUJEO [Suspect]
     Active Substance: INSULIN GLARGINE
     Dosage: UNK UNK, HS
     Route: 065
     Dates: start: 201701
  2. INSULIN ASPART [Suspect]
     Active Substance: INSULIN ASPART
     Dosage: WITH MEALS
     Dates: start: 202501

REACTIONS (2)
  - Cerebrovascular accident [Unknown]
  - Dysarthria [Unknown]

NARRATIVE: CASE EVENT DATE: 20250101
